FAERS Safety Report 5036060-7 (Version None)
Quarter: 2006Q2

REPORT INFORMATION
  Report Type: 
  Country: None (occurrence: None)
  Receive Date: 20060530
  Receipt Date: 20060224
  Transmission Date: 20061013
  Serious: No
  Sender: FDA-Public Use
  Company Number: MPS1-10502

PATIENT
  Age: 10 Year
  Sex: Female

DRUGS (1)
  1. ALDURAZYME [Suspect]
     Indication: MUCOPOLYSACCHARIDOSIS I
     Dosage: 100 U/KG UNK IV
     Route: 042

REACTIONS (1)
  - INFUSION RELATED REACTION [None]
